FAERS Safety Report 9103091 (Version 2)
Quarter: 2013Q1

REPORT INFORMATION
  Report Type: Spontaneous
  Country: FR (occurrence: FR)
  Receive Date: 20130218
  Receipt Date: 20130226
  Transmission Date: 20140127
  Serious: Yes (Life-Threatening, Other)
  Sender: FDA-Public Use
  Company Number: FR-ELI_LILLY_AND_COMPANY-FR201302000764

PATIENT
  Age: 0 Year
  Sex: Female

DRUGS (6)
  1. ZYPREXA [Suspect]
     Dosage: UNK
     Route: 064
     Dates: end: 20120422
  2. ZYPREXA [Suspect]
     Dosage: UNK
     Route: 064
     Dates: end: 20120422
  3. SERESTA [Concomitant]
     Dosage: UNK
     Route: 064
     Dates: end: 20120422
  4. SERESTA [Concomitant]
     Dosage: UNK
     Route: 064
     Dates: end: 20120422
  5. EFFEXOR [Concomitant]
     Dosage: UNK
     Dates: end: 20120422
  6. EFFEXOR [Concomitant]
     Dosage: UNK
     Dates: end: 20120422

REACTIONS (3)
  - Neonatal respiratory distress syndrome [Recovering/Resolving]
  - Premature baby [Unknown]
  - Foetal exposure during pregnancy [Unknown]
